FAERS Safety Report 4940607-6 (Version None)
Quarter: 2006Q1

REPORT INFORMATION
  Report Type: 
  Country: None (occurrence: None)
  Receive Date: 20060127
  Receipt Date: 20051028
  Transmission Date: 20060701
  Serious: Yes (Hospitalization)
  Sender: FDA-Public Use
  Company Number: 2005RL000161

PATIENT
  Age: 53 Year
  Sex: Male

DRUGS (9)
  1. PROPAFENONE HYDROCHLORIDE [Suspect]
     Indication: ATRIAL FIBRILLATION
     Dosage: 300 MG;QD;PO
     Route: 048
     Dates: start: 20050712, end: 20050805
  2. OMEPRAZOLE [Concomitant]
  3. PREDNISOLONE [Concomitant]
  4. ALFACALCIDOL [Concomitant]
  5. MYCOPHENOLATE MOFETIL [Concomitant]
  6. TACROLIMUS [Concomitant]
  7. CALCIUM GLUCONATE [Concomitant]
  8. ACENOCOUMAROL [Concomitant]
  9. FUROSEMIDE [Concomitant]

REACTIONS (1)
  - RENAL FAILURE ACUTE [None]
